FAERS Safety Report 21145374 (Version 2)
Quarter: 2022Q3

REPORT INFORMATION
  Report Type: Report from Study
  Country: US (occurrence: US)
  Receive Date: 20220729
  Receipt Date: 20220823
  Transmission Date: 20221026
  Serious: Yes (Other)
  Sender: FDA-Public Use
  Company Number: US-ABBVIE-22K-163-4483487-00

PATIENT
  Sex: Male

DRUGS (5)
  1. HUMIRA [Suspect]
     Active Substance: ADALIMUMAB
     Indication: Crohn^s disease
     Dosage: DAY 29
     Route: 058
     Dates: start: 20211110
  2. HUMIRA [Suspect]
     Active Substance: ADALIMUMAB
     Route: 058
     Dates: start: 202205, end: 2022
  3. HUMIRA [Suspect]
     Active Substance: ADALIMUMAB
     Route: 058
     Dates: start: 2022
  4. HUMIRA [Suspect]
     Active Substance: ADALIMUMAB
     Indication: Crohn^s disease
     Dosage: DAY1
     Route: 058
     Dates: start: 20211013, end: 20211013
  5. HUMIRA [Suspect]
     Active Substance: ADALIMUMAB
     Dosage: DAY15
     Route: 058
     Dates: start: 20211027, end: 20211027

REACTIONS (5)
  - Procedural haemorrhage [Unknown]
  - Inflammation [Unknown]
  - Gastrointestinal sounds abnormal [Recovered/Resolved]
  - Off label use [Unknown]
  - Crohn^s disease [Recovering/Resolving]
